FAERS Safety Report 16237869 (Version 1)
Quarter: 2019Q2

REPORT INFORMATION
  Report Type: Spontaneous
  Country: US (occurrence: US)
  Receive Date: 20190425
  Receipt Date: 20190425
  Transmission Date: 20190711
  Serious: No
  Sender: FDA-Public Use
  Company Number: US-BAUSCH-BL-2018-007107

PATIENT
  Sex: Female
  Weight: 64.92 kg

DRUGS (10)
  1. METRO [Concomitant]
     Indication: ACNE
     Dosage: STARTED ABOUT 10 YEARS AGO AND ENDED ABOUT 5 YEARS AGO.
     Route: 061
  2. FLAXSEED [Concomitant]
     Active Substance: FLAX SEED
     Indication: CARDIAC DISORDER
     Dosage: STARTED ABOUT 5 YEARS AGO,
     Route: 048
  3. MINITRAN [Suspect]
     Active Substance: NITROGLYCERIN
     Indication: MITRAL VALVE PROLAPSE
  4. OMEPRAZOLE. [Concomitant]
     Active Substance: OMEPRAZOLE
     Indication: HYPERCHLORHYDRIA
     Dosage: STARTED ABOUT 4 YEARS AGO, SHE DID NOT KNOW THE EXACT DATE?DELAYED RELEASE
     Route: 048
  5. MINITRAN [Suspect]
     Active Substance: NITROGLYCERIN
     Indication: ARTERIAL DISORDER
     Dosage: STARTED ABOUT 4 MONTHS AGO?0.2 MG/HOUR
     Route: 065
  6. PAROXETINE. [Concomitant]
     Active Substance: PAROXETINE
     Route: 048
  7. PAROXETINE. [Concomitant]
     Active Substance: PAROXETINE
     Indication: ANXIETY
     Dosage: PROBABLY 4-5 YEARS AGO, SHE DID NOT KNOW THE EXACT DATE
     Route: 048
  8. VITAMIN D3 [Concomitant]
     Active Substance: CHOLECALCIFEROL
     Indication: NUTRITIONAL SUPPLEMENTATION
     Dosage: STARTED ABOUT 2 YEARS AGO
     Route: 048
  9. LEVOTHYROXINE. [Concomitant]
     Active Substance: LEVOTHYROXINE
     Indication: THYROID DISORDER
     Dosage: STARTED ABOUT 4 MONTHS AGO, SHE DID NOT KNOW THE EXACT DATE
     Route: 048
  10. SIMVASTATIN. [Concomitant]
     Active Substance: SIMVASTATIN
     Indication: ARTERIAL DISORDER
     Dosage: STARTED ABOUT 4 YEARS AGO
     Route: 048

REACTIONS (2)
  - Papule [Recovering/Resolving]
  - Pruritus [Recovering/Resolving]
